FAERS Safety Report 15267694 (Version 3)
Quarter: 2018Q4

REPORT INFORMATION
  Report Type: Spontaneous
  Country: HK (occurrence: HK)
  Receive Date: 20180811
  Receipt Date: 20181009
  Transmission Date: 20190204
  Serious: Yes (Life-Threatening, Hospitalization, Other)
  Sender: FDA-Public Use
  Company Number: HK-SA-2018SA214950

PATIENT
  Age: 49 Year
  Sex: Female

DRUGS (2)
  1. OXALIPLATIN. [Suspect]
     Active Substance: OXALIPLATIN
     Indication: COLON CANCER STAGE III
     Dosage: 130 MG/M2, AT DAY 1
     Dates: start: 20161024
  2. CAPECITABINE. [Suspect]
     Active Substance: CAPECITABINE
     Indication: COLON CANCER STAGE III
     Dosage: 1000 MG/M2, BID
     Route: 048
     Dates: start: 20161024, end: 20161106

REACTIONS (4)
  - Diarrhoea [Unknown]
  - Febrile neutropenia [Unknown]
  - Bone marrow failure [Unknown]
  - Bone marrow toxicity [Unknown]

NARRATIVE: CASE EVENT DATE: 20161105
